FAERS Safety Report 9562551 (Version 2)
Quarter: 2013Q4

REPORT INFORMATION
  Report Type: Spontaneous
  Country: US (occurrence: US)
  Receive Date: 20130927
  Receipt Date: 20131029
  Transmission Date: 20140711
  Serious: No
  Sender: FDA-Public Use
  Company Number: US-TEVA-434406USA

PATIENT
  Sex: Female

DRUGS (3)
  1. PARAGARD 380A [Suspect]
     Indication: CONTRACEPTION
     Route: 015
  2. PREGABALIN [Concomitant]
     Indication: FIBROMYALGIA
     Route: 015
  3. PREGABALIN [Concomitant]
     Indication: CONTRACEPTION

REACTIONS (2)
  - Metrorrhagia [Recovered/Resolved]
  - Complication of device insertion [Recovered/Resolved]
